FAERS Safety Report 4789593-2 (Version None)
Quarter: 2005Q4

REPORT INFORMATION
  Report Type: 
  Country: None (occurrence: None)
  Receive Date: 20051004
  Receipt Date: 20050920
  Transmission Date: 20060501
  Serious: Yes (Other)
  Sender: FDA-Public Use
  Company Number: USA0508104541

PATIENT
  Age: 79 Year
  Sex: Female

DRUGS (1)
  1. FORTEO [Suspect]
     Indication: OSTEOPOROSIS
     Dates: start: 20050401, end: 20050801

REACTIONS (9)
  - CARDIAC FAILURE [None]
  - EAR PAIN [None]
  - EFFUSION [None]
  - FEELING ABNORMAL [None]
  - GENERALISED OEDEMA [None]
  - HEADACHE [None]
  - NECK PAIN [None]
  - SHOULDER PAIN [None]
  - TYMPANIC MEMBRANE DISORDER [None]
